FAERS Safety Report 25646313 (Version 1)
Quarter: 2025Q3

REPORT INFORMATION
  Report Type: Spontaneous
  Country: CN (occurrence: CN)
  Receive Date: 20250805
  Receipt Date: 20250805
  Transmission Date: 20251021
  Serious: Yes (Other)
  Sender: TAKEDA
  Company Number: CN-HUTCHMED LIMITED-HMP2025CN01936

PATIENT
  Age: 78 Year
  Sex: Female
  Weight: 38 kg

DRUGS (2)
  1. FRUQUINTINIB [Suspect]
     Active Substance: FRUQUINTINIB
     Indication: Rectal cancer
     Dosage: 5 MILLIGRAM, QD
     Dates: start: 20250708, end: 20250728
  2. SINTILIMAB [Concomitant]
     Active Substance: SINTILIMAB
     Indication: Rectal cancer
     Dosage: 200 MILLIGRAM, QD
     Dates: start: 20250708, end: 20250708

REACTIONS (6)
  - Myelosuppression [Unknown]
  - Dry mouth [Unknown]
  - Urinary occult blood positive [Unknown]
  - White blood cells urine positive [Unknown]
  - Dysphonia [Unknown]
  - Protein urine present [Unknown]

NARRATIVE: CASE EVENT DATE: 20250711
